FAERS Safety Report 17641598 (Version 3)
Quarter: 2020Q3

REPORT INFORMATION
  Report Type: Spontaneous
  Country: US (occurrence: US)
  Receive Date: 20200408
  Receipt Date: 20200905
  Transmission Date: 20201102
  Serious: Yes (Other)
  Sender: FDA-Public Use
  Company Number: US-009507513-2004USA002252

PATIENT
  Age: 33 Year
  Sex: Female
  Weight: 170 kg

DRUGS (2)
  1. NEXPLANON [Suspect]
     Active Substance: ETONOGESTREL
     Indication: CONTRACEPTION
     Dosage: 1 ROD EVERY 3 YEARS
     Route: 059
     Dates: start: 20181108, end: 2020
  2. RIFAMPIN. [Concomitant]
     Active Substance: RIFAMPIN
     Dosage: UNK

REACTIONS (5)
  - Abortion spontaneous [Unknown]
  - Latent tuberculosis [Unknown]
  - Unintended pregnancy [Recovered/Resolved]
  - Multiple sclerosis [Unknown]
  - Pregnancy with implant contraceptive [Recovered/Resolved]

NARRATIVE: CASE EVENT DATE: 201904
